FAERS Safety Report 8879926 (Version 3)
Quarter: 2012Q4

REPORT INFORMATION
  Report Type: 
  Country: BR (occurrence: BR)
  Receive Date: 20121101
  Receipt Date: 20121115
  Transmission Date: 20130627
  Serious: Yes (Hospitalization, Other)
  Sender: FDA-Public Use
  Company Number: BR-PFIZER INC-2012270201

PATIENT
  Age: 75 Year
  Sex: Male

DRUGS (10)
  1. ATENOLOL [Suspect]
     Indication: HYPERTENSION
     Dosage: 50 mg, QD
     Route: 048
     Dates: start: 2005
  2. LOSEC [Suspect]
     Indication: GASTRITIS
     Dosage: 20 mg, QD
     Route: 048
     Dates: start: 1995
  3. LOSEC [Suspect]
     Indication: PROPHYLAXIS
     Dosage: 20 mg, QD
     Route: 048
     Dates: start: 1997
  4. LOSEC [Suspect]
     Indication: GASTRIC ULCER
  5. TECTA [Suspect]
     Indication: PROPHYLAXIS
     Dosage: UNK
     Route: 065
  6. AAS [Concomitant]
     Indication: ANTICOAGULANT THERAPY
     Dosage: Two times a day, more than 20 years
     Route: 048
  7. SUSTRATE [Concomitant]
     Indication: VASODILATION PROCEDURE
     Dosage: Three times a day, more than 20 years
     Route: 047
  8. OLCADIL [Concomitant]
     Indication: SEDATION
     Dosage: Every day
     Route: 048
     Dates: start: 2006
  9. CAPOTEN [Concomitant]
     Indication: HYPERTENSION
     Dosage: Two times a day
     Route: 048
     Dates: start: 1998
  10. DRUG, UNSPECIFIED [Concomitant]
     Indication: HEART DISORDER
     Dosage: Unk
     Route: 065

REACTIONS (13)
  - Venous occlusion [Recovered/Resolved]
  - Polyneuropathy [Not Recovered/Not Resolved]
  - Neuralgia [Not Recovered/Not Resolved]
  - Arthritis [Not Recovered/Not Resolved]
  - Osteoarthritis [Not Recovered/Not Resolved]
  - Arthralgia [Not Recovered/Not Resolved]
  - Nasopharyngitis [Not Recovered/Not Resolved]
  - Foaming at mouth [Not Recovered/Not Resolved]
  - Hepatic steatosis [Not Recovered/Not Resolved]
  - Gastrointestinal pain [Recovered/Resolved]
  - Amylase abnormal [Not Recovered/Not Resolved]
  - Myalgia [Not Recovered/Not Resolved]
  - Dry mouth [Not Recovered/Not Resolved]
